FAERS Safety Report 8731837 (Version 2)
Quarter: 2013Q4

REPORT INFORMATION
  Report Type: Spontaneous
  Country: US (occurrence: US)
  Receive Date: 20120820
  Receipt Date: 20131101
  Transmission Date: 20140711
  Serious: No
  Sender: FDA-Public Use
  Company Number: US-009507513-1208USA007518

PATIENT
  Sex: Female

DRUGS (1)
  1. COPPERTONE [Suspect]
     Indication: PROPHYLAXIS AGAINST SOLAR RADIATION
     Dosage: UNK, UNKNOWN
     Route: 061

REACTIONS (1)
  - Rash [Unknown]
